FAERS Safety Report 6256353-5 (Version None)
Quarter: 2009Q3

REPORT INFORMATION
  Report Type: 
  Country: None (occurrence: None)
  Receive Date: 20090706
  Receipt Date: 20090701
  Transmission Date: 20100115
  Serious: Yes (Death, Hospitalization)
  Sender: FDA-Public Use
  Company Number: DE-ROCHE-468794

PATIENT
  Age: 52 Year
  Sex: Female
  Weight: 72 kg

DRUGS (11)
  1. CAPECITABINE [Suspect]
     Dosage: DOSE GIVEN IN MORNING AND EVENING FOR 14 DAYS EVERY THREE WEEKS
     Route: 048
     Dates: start: 20061002, end: 20061014
  2. FRAGMIN [Concomitant]
  3. IMODIUM [Concomitant]
  4. TPN [Concomitant]
     Indication: DIARRHOEA
     Dosage: . OTHER INDICATION VOMITING
     Dates: end: 20061031
  5. METRONIDAZOLE HCL [Concomitant]
     Route: 048
     Dates: start: 20061027, end: 20061030
  6. NOVALGIN [Concomitant]
     Indication: PAIN
     Route: 042
     Dates: start: 20061027, end: 20061027
  7. ZOLPIDEM TARTRATE [Concomitant]
     Route: 048
     Dates: start: 20061028, end: 20061028
  8. VOLTAREN [Concomitant]
     Indication: PAIN
     Dosage: UNIT REPORTED AS TPS
     Route: 048
     Dates: start: 20061021, end: 20061022
  9. TRAMADOL HCL [Concomitant]
     Indication: PAIN
     Dosage: DOSE REPORTED AS 20
     Route: 048
     Dates: start: 20061021, end: 20061021
  10. TRAMADOL HCL [Concomitant]
     Route: 048
     Dates: start: 20061028, end: 20061028
  11. ACETAMINOPHEN [Concomitant]
     Indication: PAIN
     Dosage: DOSE AND FREQUENCY AS NEEDED
     Route: 042
     Dates: start: 20061020, end: 20061021

REACTIONS (6)
  - BREAST CANCER METASTATIC [None]
  - DIARRHOEA [None]
  - HAEMATEMESIS [None]
  - PAROTITIS [None]
  - PNEUMONIA [None]
  - PULMONARY EMBOLISM [None]
